FAERS Safety Report 6207484-7 (Version None)
Quarter: 2009Q2

REPORT INFORMATION
  Report Type: 
  Country: None (occurrence: None)
  Receive Date: 20090528
  Receipt Date: 20090518
  Transmission Date: 20091009
  Serious: Yes (Other)
  Sender: FDA-Public Use
  Company Number: US-PFIZER INC-2009216860

PATIENT
  Sex: Female
  Weight: 74.8 kg

DRUGS (19)
  1. VFEND [Suspect]
     Indication: FUNGAL INFECTION
     Dosage: 320 MG, 2X/DAY
     Route: 042
     Dates: start: 20090101, end: 20090301
  2. VFEND [Suspect]
     Dosage: 400 MG, 2X/DAY
     Route: 042
     Dates: start: 20090401
  3. VFEND [Suspect]
     Dosage: 200 MG, 2X/DAY
     Route: 048
     Dates: start: 20090301, end: 20090401
  4. ADVAIR HFA [Concomitant]
     Dosage: 250 MG, 2X/DAY
  5. BACLOFEN [Concomitant]
     Dosage: 20 MG, 3X/DAY
  6. ALL OTHER THERAPEUTIC PRODUCTS [Concomitant]
     Dosage: 10 MG, 1X/DAY
  7. DIOVANE [Concomitant]
     Dosage: 80 MG, 1X/DAY
  8. DITROPAN [Concomitant]
     Dosage: 5 MG, 3X/DAY
  9. ALL OTHER THERAPEUTIC PRODUCTS [Concomitant]
     Dosage: 12.5 MG, 1X/DAY
  10. MINOCIN [Concomitant]
     Dosage: 120 MG, 4X/DAY
  11. ZYPREXA [Concomitant]
     Dosage: 7.5 MG, 1X/DAY
  12. NASONEX [Concomitant]
     Dosage: 50 MG, 2X/DAY
  13. NEXIUM [Concomitant]
     Dosage: 40 MG, 2X/DAY
  14. PAXIL [Concomitant]
     Dosage: 40 MG, 1X/DAY
  15. SALBUTAMOL [Concomitant]
     Dosage: UNK MG, 2X/DAY
  16. PROVIGIL [Concomitant]
     Dosage: 100 MG, 2X/DAY
  17. MONTELUKAST SODIUM [Concomitant]
     Dosage: 10 MG, 1X/DAY
  18. PROPRANOLOL [Concomitant]
     Dosage: 50 MG, 1X/DAY
  19. VICODIN [Concomitant]
     Dosage: 750 MG, 3X/DAY

REACTIONS (4)
  - AFFECTIVE DISORDER [None]
  - ANXIETY [None]
  - RED BLOOD CELL SEDIMENTATION RATE INCREASED [None]
  - VISUAL IMPAIRMENT [None]
